FAERS Safety Report 12613348 (Version 2)
Quarter: 2016Q3

REPORT INFORMATION
  Report Type: Spontaneous
  Country: US (occurrence: US)
  Receive Date: 20160802
  Receipt Date: 20160817
  Transmission Date: 20161109
  Serious: No
  Sender: FDA-Public Use
  Company Number: US-BAYER-2016-139134

PATIENT
  Age: 77 Year
  Sex: Female
  Weight: 81.63 kg

DRUGS (4)
  1. MIRALAX [Suspect]
     Active Substance: POLYETHYLENE GLYCOL 3350
     Dosage: UNK
     Route: 048
     Dates: start: 20160714
  2. MOEXIPRIL [Concomitant]
     Active Substance: MOEXIPRIL HYDROCHLORIDE
     Indication: HYPERTENSION
     Dosage: UNK
  3. AMLODIPINE BESYLATE. [Concomitant]
     Active Substance: AMLODIPINE BESYLATE
     Indication: HYPERTENSION
     Dosage: UNK
  4. DULCOLAX (BISACODYL) [Concomitant]
     Active Substance: BISACODYL
     Dosage: UNK
     Dates: start: 20160714

REACTIONS (1)
  - Off label use [None]

NARRATIVE: CASE EVENT DATE: 20160714
